FAERS Safety Report 21802206 (Version 1)
Quarter: 2022Q4

REPORT INFORMATION
  Report Type: Spontaneous
  Country: US (occurrence: US)
  Receive Date: 20221230
  Receipt Date: 20221230
  Transmission Date: 20230113
  Serious: No
  Sender: FDA-Public Use
  Company Number: US-ACORDA-ACO_172985_2022

PATIENT
  Age: 78 Year
  Sex: Male

DRUGS (2)
  1. INBRIJA [Suspect]
     Active Substance: LEVODOPA
     Indication: Parkinson^s disease
     Dosage: 2 DOSAGE FORM (2 CAPSULES, 84 MG) , PRN (NOT TO EXCEED 5 DOSES A DAY)
     Dates: start: 20220604, end: 20220712
  2. INBRIJA [Suspect]
     Active Substance: LEVODOPA
     Indication: On and off phenomenon
     Dosage: 2 DOSAGE FORM, PRN, (DO NOT EXCEED 5 DOSES IN 1 DAY)
     Dates: start: 20220701, end: 2022

REACTIONS (5)
  - Nasal obstruction [Not Recovered/Not Resolved]
  - Therapeutic product effect incomplete [Unknown]
  - Bronchospasm [Not Recovered/Not Resolved]
  - Dyspnoea [Recovered/Resolved]
  - Insomnia [Unknown]

NARRATIVE: CASE EVENT DATE: 20220704
